FAERS Safety Report 19497315 (Version 1)
Quarter: 2021Q3

REPORT INFORMATION
  Report Type: Spontaneous
  Country: US (occurrence: US)
  Receive Date: 20210706
  Receipt Date: 20210706
  Transmission Date: 20211014
  Serious: No
  Sender: FDA-Public Use
  Company Number: None

PATIENT

DRUGS (1)
  1. REXULTI [Suspect]
     Active Substance: BREXPIPRAZOLE
     Indication: DEPRESSION
     Dosage: ?          QUANTITY:1 TABLET(S);?
     Route: 048
     Dates: start: 20210607

REACTIONS (7)
  - Diarrhoea [None]
  - Constipation [None]
  - Abnormal dreams [None]
  - Libido increased [None]
  - Impulsive behaviour [None]
  - Muscle spasms [None]
  - Musculoskeletal disorder [None]

NARRATIVE: CASE EVENT DATE: 20210703
